FAERS Safety Report 18619800 (Version 1)
Quarter: 2020Q4

REPORT INFORMATION
  Report Type: Spontaneous
  Country: KR (occurrence: KR)
  Receive Date: 20201215
  Receipt Date: 20201215
  Transmission Date: 20210114
  Serious: No
  Sender: FDA-Public Use
  Company Number: KR-LUPIN PHARMACEUTICALS INC.-2020-04169

PATIENT
  Age: 70 Year
  Sex: Male

DRUGS (10)
  1. LIDOCAINE. [Concomitant]
     Active Substance: LIDOCAINE
     Dosage: 1 PERCENT AT 4 CUBIC CM
     Route: 065
     Dates: start: 201801
  2. TRIAMCINOLONE [Concomitant]
     Active Substance: TRIAMCINOLONE
     Indication: TRANSVERSUS ABDOMINIS PLANE BLOCK
     Dosage: 10 MILLIGRAM
     Dates: start: 201801
  3. OXYCODONE HYDROCHLORIDE. [Suspect]
     Active Substance: OXYCODONE HYDROCHLORIDE
     Indication: PAIN MANAGEMENT
     Dosage: 5 MILLIGRAM
     Route: 048
     Dates: start: 201801
  4. TRAMADOL AND PARACETAMOL [Suspect]
     Active Substance: ACETAMINOPHEN\TRAMADOL
     Indication: PAIN MANAGEMENT
     Dosage: 1 DOSAGE FORM, EVERY 6 HOURS
     Route: 048
     Dates: start: 2017
  5. TRAMADOL AND PARACETAMOL [Suspect]
     Active Substance: ACETAMINOPHEN\TRAMADOL
     Dosage: 1 DOSAGE FORM, TID
     Route: 048
     Dates: start: 201801
  6. LIDOCAINE. [Concomitant]
     Active Substance: LIDOCAINE
     Indication: TRANSVERSUS ABDOMINIS PLANE BLOCK
     Dosage: 2.5 PERCENT, CREAM
     Route: 065
     Dates: start: 2017
  7. LIDOCAINE. [Concomitant]
     Active Substance: LIDOCAINE
     Dosage: TRANSDERMAL PATCH
     Route: 062
     Dates: start: 2017
  8. MEPIVACAINE [Concomitant]
     Active Substance: MEPIVACAINE HYDROCHLORIDE
     Indication: TRANSVERSUS ABDOMINIS PLANE BLOCK
     Dosage: 0.8 PERCENT 4 CUBIC CM
     Route: 065
     Dates: start: 201801
  9. LIDOCAINE. [Concomitant]
     Active Substance: LIDOCAINE
     Indication: PAIN MANAGEMENT
     Dosage: 10 PERCENT, CUTANEOUS SPRAY
     Route: 065
     Dates: start: 2017
  10. PRILOCAINE [Concomitant]
     Active Substance: PRILOCAINE
     Indication: PAIN MANAGEMENT
     Dosage: UNK
     Route: 065
     Dates: start: 2017

REACTIONS (3)
  - Somnolence [Unknown]
  - Constipation [Unknown]
  - Drug ineffective [Unknown]

NARRATIVE: CASE EVENT DATE: 2018
